FAERS Safety Report 8964711 (Version 3)
Quarter: 2013Q1

REPORT INFORMATION
  Report Type: Spontaneous
  Country: US (occurrence: US)
  Receive Date: 20121214
  Receipt Date: 20130128
  Transmission Date: 20140127
  Serious: Yes (Other)
  Sender: FDA-Public Use
  Company Number: US-ASTRAZENECA-2008UW07124

PATIENT
  Age: 72 Year
  Sex: Female
  Weight: 84.4 kg

DRUGS (18)
  1. CRESTOR [Suspect]
     Indication: BLOOD CHOLESTEROL INCREASED
     Route: 048
     Dates: start: 200712, end: 20121109
  2. LISINOPRIL [Suspect]
     Route: 048
  3. ASA [Concomitant]
     Route: 048
  4. ACTOS [Concomitant]
  5. CELEBREX [Concomitant]
     Dosage: EVERY DAY
  6. BENICAR [Concomitant]
  7. COREG [Concomitant]
  8. COREG [Concomitant]
  9. GLUCOVANCE [Concomitant]
     Dosage: 5/500 QD
  10. MAXZIDE [Concomitant]
     Dosage: 37.5/25 QD
  11. PREMARIN VAGINAL CREAM [Concomitant]
  12. PREVACID [Concomitant]
     Dosage: EVERY DAY
  13. PRADAXA [Concomitant]
  14. GABAPENTIN [Concomitant]
  15. TRAMARINE [Concomitant]
  16. GLIPIZIDE [Concomitant]
  17. NOVOLOG [Concomitant]
  18. LEVAMIR [Concomitant]

REACTIONS (11)
  - Musculoskeletal disorder [Unknown]
  - Activities of daily living impaired [Unknown]
  - Muscular weakness [Recovering/Resolving]
  - Vision blurred [Recovering/Resolving]
  - Gait disturbance [Unknown]
  - Musculoskeletal pain [Recovering/Resolving]
  - Muscular weakness [Unknown]
  - Muscular weakness [Unknown]
  - Muscular weakness [Unknown]
  - Abdominal pain [Unknown]
  - Nausea [Unknown]
